FAERS Safety Report 6875893-9 (Version None)
Quarter: 2010Q3

REPORT INFORMATION
  Report Type: 
  Country: None (occurrence: None)
  Receive Date: 20100727
  Receipt Date: 20100719
  Transmission Date: 20110219
  Serious: Yes (Hospitalization)
  Sender: FDA-Public Use
  Company Number: PL-B.I. PHARMACEUTICALS,INC./RIDGEFIELD-2010-BP-05987YA

PATIENT
  Sex: Male
  Weight: 95 kg

DRUGS (3)
  1. TAMSULOSIN HCL [Suspect]
     Indication: URINARY TRACT INFECTION
     Route: 048
     Dates: start: 20100413, end: 20100511
  2. TAMSULOSIN HCL [Suspect]
     Indication: BENIGN PROSTATIC HYPERPLASIA
  3. AUGMENTIN '125' [Suspect]
     Indication: EAR PAIN
     Dosage: 2 G
     Route: 048
     Dates: start: 20100505, end: 20100507

REACTIONS (1)
  - ATRIAL FIBRILLATION [None]
